FAERS Safety Report 11556601 (Version 1)
Quarter: 2015Q3

REPORT INFORMATION
  Report Type: Spontaneous
  Country: US (occurrence: US)
  Receive Date: 20150916
  Receipt Date: 20150916
  Transmission Date: 20151125
  Serious: No
  Sender: FDA-Public Use
  Company Number: US-ELI_LILLY_AND_COMPANY-US200806001091

PATIENT
  Age: 78 Year
  Sex: Female

DRUGS (6)
  1. IBUPROFEN. [Concomitant]
     Active Substance: IBUPROFEN
     Dosage: UNKNOWN
  2. CORTISONE [Concomitant]
     Active Substance: CORTISONE\HYDROCORTISONE
     Dosage: UNK, AS NEEDED
     Dates: start: 20080602, end: 20080602
  3. CORTISONE [Concomitant]
     Active Substance: CORTISONE\HYDROCORTISONE
     Dates: start: 20061203, end: 20061203
  4. FORTEO [Suspect]
     Active Substance: TERIPARATIDE
     Dates: start: 20080506
  5. METHOTREXATE [Concomitant]
     Active Substance: METHOTREXATE
  6. ENBREL [Concomitant]
     Active Substance: ETANERCEPT

REACTIONS (2)
  - Pain in extremity [Unknown]
  - Arthralgia [Not Recovered/Not Resolved]

NARRATIVE: CASE EVENT DATE: 2008
